FAERS Safety Report 9022406 (Version 3)
Quarter: 2013Q1

REPORT INFORMATION
  Report Type: Spontaneous
  Country: US (occurrence: US)
  Receive Date: 20130118
  Receipt Date: 20130314
  Transmission Date: 20140127
  Serious: No
  Sender: FDA-Public Use
  Company Number: PHEH2013US001560

PATIENT
  Age: 54 None
  Sex: Male
  Weight: 81.63 kg

DRUGS (11)
  1. TASIGNA [Suspect]
     Indication: CHRONIC MYELOID LEUKAEMIA
     Dosage: 300 MG, BID
     Route: 048
     Dates: start: 20120820, end: 20130107
  2. TASIGNA [Suspect]
     Dosage: 300 MG, QD
     Route: 048
     Dates: start: 20130123
  3. TASIGNA [Suspect]
     Dosage: 300 MG, BID
     Route: 048
     Dates: start: 20130131
  4. PROVENTIL [Concomitant]
     Dosage: 90 UG, UNK
  5. CLARINEX [Concomitant]
     Dosage: 5 MG, UNK
  6. ADVAIR DISKUS [Concomitant]
     Indication: ASTHMA
     Dosage: 2 DF, BID
  7. MULTIVITAMIN [Concomitant]
  8. HYDROCORTISONE [Concomitant]
     Dosage: 2.5 %, UNK
  9. BABY ASPIRIN [Concomitant]
     Dosage: 81 MG, QD
  10. ALBUTEROL [Concomitant]
     Dosage: 90 UG, UNK
  11. ZYRTEC [Concomitant]
     Dosage: 10 MG, QD

REACTIONS (5)
  - Madarosis [Unknown]
  - Tenderness [Recovering/Resolving]
  - Rash [Recovering/Resolving]
  - Pain [Unknown]
  - Alopecia [Unknown]
